FAERS Safety Report 8861384 (Version 1)
Quarter: 2012Q4

REPORT INFORMATION
  Report Type: Spontaneous
  Country: US (occurrence: None)
  Receive Date: 20121022
  Receipt Date: 20121022
  Transmission Date: 20130627
  Serious: Yes (Other)
  Sender: FDA-Public Use
  Company Number: 2012P1060898

PATIENT
  Age: 35 Year
  Sex: Male
  Weight: 74.84 kg

DRUGS (5)
  1. ATIVAN [Suspect]
     Dates: start: 20110513
  2. ONE A DAY VITAMIN [Concomitant]
  3. WHEAT GERM OIL [Concomitant]
  4. FLAX OIL [Concomitant]
  5. VITAMIN [Concomitant]

REACTIONS (2)
  - Incoherent [None]
  - Pneumonia [None]
